FAERS Safety Report 11376809 (Version 2)
Quarter: 2015Q4

REPORT INFORMATION
  Report Type: Report from Study
  Country: US (occurrence: US)
  Receive Date: 20150813
  Receipt Date: 20151009
  Transmission Date: 20160304
  Serious: Yes (Hospitalization)
  Sender: FDA-Public Use
  Company Number: US-JNJFOC-20150808770

PATIENT
  Age: 65 Year
  Sex: Male
  Weight: 133 kg

DRUGS (3)
  1. DEMADEX [Concomitant]
     Active Substance: TORSEMIDE
  2. IBRUTINIB [Suspect]
     Active Substance: IBRUTINIB
     Indication: CHRONIC LYMPHOCYTIC LEUKAEMIA
     Route: 048
     Dates: start: 20150513
  3. ZEBETA [Concomitant]
     Active Substance: BISOPROLOL FUMARATE

REACTIONS (1)
  - Sinus bradycardia [Not Recovered/Not Resolved]

NARRATIVE: CASE EVENT DATE: 20150610
